FAERS Safety Report 7619806-0 (Version None)
Quarter: 2011Q3

REPORT INFORMATION
  Report Type: 
  Country: None (occurrence: None)
  Receive Date: 20110719
  Receipt Date: 20110602
  Transmission Date: 20111222
  Serious: Yes (Other)
  Sender: FDA-Public Use
  Company Number: US-BAXTER-2010BH003667

PATIENT
  Age: 35 Year
  Sex: Female
  Weight: 217 kg

DRUGS (22)
  1. WARFARIN SODIUM [Concomitant]
     Indication: PRODUCT USED FOR UNKNOWN INDICATION
     Route: 065
  2. ATIVAN [Concomitant]
     Indication: PRODUCT USED FOR UNKNOWN INDICATION
     Route: 065
  3. ALTEPLASE [Suspect]
     Indication: PULMONARY EMBOLISM
     Route: 042
     Dates: start: 20080313, end: 20080313
  4. COUMADIN [Suspect]
     Route: 048
     Dates: start: 20080316, end: 20080317
  5. TYLENOL-500 [Concomitant]
     Indication: PRODUCT USED FOR UNKNOWN INDICATION
     Route: 065
  6. MORPHINE SULFATE [Concomitant]
     Indication: PRODUCT USED FOR UNKNOWN INDICATION
     Route: 065
  7. HEPARIN SODIUM INJECTION [Suspect]
  8. COUMADIN [Suspect]
     Route: 048
     Dates: start: 20080320
  9. SODIUM CHLORIDE 0.9% IN PLASTIC CONTAINER [Concomitant]
     Indication: PRODUCT USED FOR UNKNOWN INDICATION
     Route: 065
  10. ZOFRAN [Concomitant]
     Indication: PRODUCT USED FOR UNKNOWN INDICATION
     Route: 065
  11. LASIX [Concomitant]
     Indication: PRODUCT USED FOR UNKNOWN INDICATION
     Route: 065
  12. HEPARIN SODIUM 5,000 UNITS IN DEXTROSE 5% [Suspect]
     Route: 041
     Dates: start: 20080313, end: 20080320
  13. COUMADIN [Suspect]
     Route: 048
     Dates: start: 20080314, end: 20080315
  14. RESTORIL [Concomitant]
     Indication: PRODUCT USED FOR UNKNOWN INDICATION
     Route: 065
  15. HEPARIN SODIUM 5,000 UNITS IN DEXTROSE 5% [Suspect]
     Indication: PULMONARY EMBOLISM
     Route: 041
     Dates: start: 20080313, end: 20080313
  16. HEPARIN SODIUM 5,000 UNITS IN DEXTROSE 5% [Suspect]
     Route: 041
     Dates: start: 20081201, end: 20081201
  17. HEPARIN SODIUM 5,000 UNITS IN DEXTROSE 5% [Suspect]
     Route: 041
     Dates: start: 20080923, end: 20080924
  18. COUMADIN [Suspect]
     Route: 048
     Dates: start: 20080319, end: 20080319
  19. PERCOCET [Concomitant]
     Indication: PRODUCT USED FOR UNKNOWN INDICATION
     Route: 065
  20. COUMADIN [Suspect]
     Indication: PULMONARY EMBOLISM
     Route: 048
     Dates: start: 20080318, end: 20080318
  21. HEPARIN SODIUM INJECTION [Suspect]
     Indication: PULMONARY EMBOLISM
     Route: 040
     Dates: start: 20080313, end: 20080313
  22. HEPARIN SODIUM INJECTION [Suspect]
     Route: 042
     Dates: start: 20080313, end: 20080320

REACTIONS (12)
  - HYPOAESTHESIA [None]
  - NAUSEA [None]
  - VISION BLURRED [None]
  - RASH [None]
  - DIARRHOEA [None]
  - MUSCULOSKELETAL PAIN [None]
  - PARAESTHESIA [None]
  - ABDOMINAL PAIN UPPER [None]
  - SWELLING FACE [None]
  - CHEST PAIN [None]
  - CHEST DISCOMFORT [None]
  - ERYTHEMA [None]
